FAERS Safety Report 5012422-9 (Version None)
Quarter: 2006Q2

REPORT INFORMATION
  Report Type: 
  Country: None (occurrence: None)
  Receive Date: 20060414
  Receipt Date: 20060118
  Transmission Date: 20061013
  Serious: No
  Sender: FDA-Public Use
  Company Number: 2006SP000312

PATIENT
  Age: 83 Year
  Sex: Male
  Weight: 81.6475 kg

DRUGS (4)
  1. LUNESTA [Suspect]
     Indication: INSOMNIA
     Dosage: 2 MG;PRN;ORAL
     Route: 048
     Dates: start: 20050701, end: 20060117
  2. DIURIL [Concomitant]
  3. AMBIEN [Concomitant]
  4. RESTORIL [Concomitant]

REACTIONS (4)
  - AGITATION [None]
  - DYSPNOEA [None]
  - HALLUCINATION [None]
  - PARADOXICAL DRUG REACTION [None]
